FAERS Safety Report 6187776-0 (Version None)
Quarter: 2009Q2

REPORT INFORMATION
  Report Type: 
  Country: None (occurrence: None)
  Receive Date: 20090513
  Receipt Date: 20090505
  Transmission Date: 20091009
  Serious: Yes (Other)
  Sender: FDA-Public Use
  Company Number: AU-BRISTOL-MYERS SQUIBB COMPANY-14620314

PATIENT
  Age: 61 Year
  Sex: Male

DRUGS (2)
  1. ERBITUX [Suspect]
     Indication: GASTROINTESTINAL CARCINOMA
  2. IRINOTECAN HCL [Concomitant]

REACTIONS (1)
  - VASCULITIS [None]
